FAERS Safety Report 23401424 (Version 1)
Quarter: 2024Q1

REPORT INFORMATION
  Report Type: Report from Study
  Country: US (occurrence: US)
  Receive Date: 20240115
  Receipt Date: 20240115
  Transmission Date: 20240410
  Serious: Yes (Hospitalization)
  Sender: FDA-Public Use
  Company Number: US-ABBVIE-5575156

PATIENT
  Sex: Female
  Weight: 65.77 kg

DRUGS (2)
  1. RINVOQ [Suspect]
     Active Substance: UPADACITINIB
     Indication: Colitis ulcerative
     Dosage: FORM STRENGTH- 45 MILLIGRAM
     Route: 048
     Dates: start: 20230501
  2. DULOXETINE [Concomitant]
     Active Substance: DULOXETINE
     Indication: Anxiolytic therapy

REACTIONS (11)
  - Haemorrhage [Recovered/Resolved]
  - Blood iron decreased [Recovered/Resolved]
  - Colitis ulcerative [Unknown]
  - Therapeutic product effect decreased [Not Recovered/Not Resolved]
  - Fatigue [Recovered/Resolved]
  - Haemoglobin decreased [Recovered/Resolved]
  - Blood calcium decreased [Unknown]
  - Malabsorption [Recovered/Resolved]
  - Vitamin D decreased [Recovered/Resolved]
  - Rash [Recovered/Resolved]
  - Inflammatory marker increased [Recovered/Resolved]

NARRATIVE: CASE EVENT DATE: 20230101
